FAERS Safety Report 9779070 (Version 1)
Quarter: 2013Q4

REPORT INFORMATION
  Report Type: Spontaneous
  Country: US (occurrence: US)
  Receive Date: 20131223
  Receipt Date: 20131223
  Transmission Date: 20140711
  Serious: Yes (Other)
  Sender: FDA-Public Use
  Company Number: US-PFIZER INC-2013363791

PATIENT
  Age: 52 Year
  Sex: Female
  Weight: 61.22 kg

DRUGS (3)
  1. ADVIL PM [Suspect]
     Indication: SLEEP DISORDER
     Dosage: UNK
     Route: 048
  2. ADVIL PM [Interacting]
     Dosage: 400 MG, AS NEEDED
     Route: 048
     Dates: start: 20131216
  3. KEPPRA [Interacting]
     Indication: CONVULSION
     Dosage: UNK

REACTIONS (4)
  - Drug interaction [Unknown]
  - Convulsion [Unknown]
  - Muscle spasms [Unknown]
  - Insomnia [Unknown]
